FAERS Safety Report 4332812-7 (Version None)
Quarter: 2004Q1

REPORT INFORMATION
  Report Type: 
  Country: None (occurrence: None)
  Receive Date: 20040330
  Receipt Date: 20040316
  Transmission Date: 20041129
  Serious: Yes (Other)
  Sender: FDA-Public Use
  Company Number: S04-USA-01551-01

PATIENT
  Age: 44 Year
  Sex: Female

DRUGS (1)
  1. LEXAPRO [Suspect]
     Indication: ANXIETY
     Dosage: 10 MG QD PO
     Route: 048
     Dates: start: 20030901

REACTIONS (3)
  - DIZZINESS [None]
  - HEART RATE INCREASED [None]
  - WEIGHT INCREASED [None]
